FAERS Safety Report 16608101 (Version 1)
Quarter: 2019Q3

REPORT INFORMATION
  Report Type: Spontaneous
  Country: PL (occurrence: PL)
  Receive Date: 20190722
  Receipt Date: 20190722
  Transmission Date: 20191004
  Serious: Yes (Other)
  Sender: FDA-Public Use
  Company Number: PL-PFIZER INC-2019312966

PATIENT
  Sex: Female

DRUGS (1)
  1. CONTROLOC [Suspect]
     Active Substance: PANTOPRAZOLE SODIUM
     Dosage: UNK
     Route: 048

REACTIONS (7)
  - Dyspnoea [Unknown]
  - Palpitations [Unknown]
  - Malaise [Unknown]
  - Dry mouth [Unknown]
  - Rash [Unknown]
  - Swelling face [Unknown]
  - Pruritus generalised [Unknown]
